FAERS Safety Report 16658090 (Version 1)
Quarter: 2019Q3

REPORT INFORMATION
  Report Type: Spontaneous
  Country: CA (occurrence: CA)
  Receive Date: 20190801
  Receipt Date: 20190801
  Transmission Date: 20191004
  Serious: Yes (Other)
  Sender: FDA-Public Use
  Company Number: CA-TEVA-2019-CA-1084746

PATIENT
  Sex: Male
  Weight: 22 kg

DRUGS (17)
  1. DOXORUBICIN HYDROCHLORIDE INJECTION [Suspect]
     Active Substance: DOXORUBICIN HYDROCHLORIDE
     Indication: LYMPHOCYTIC LEUKAEMIA
     Dosage: 30 MG/M2 DAILY;
     Route: 042
  2. NIFEDIPINE. [Concomitant]
     Active Substance: NIFEDIPINE
  3. ETOPOSIDE INJECTION,USP [Concomitant]
     Active Substance: ETOPOSIDE
  4. RAPAMUNE [Concomitant]
     Active Substance: SIROLIMUS
  5. VINCRISTINE SULFATE INJECTION USP [Concomitant]
     Active Substance: VINCRISTINE SULFATE
  6. CYCLOSPORINE. [Concomitant]
     Active Substance: CYCLOSPORINE
  7. L-ASPARAGINASE [Concomitant]
     Active Substance: ASPARAGINASE
  8. MYCOPHENOLATE MOFETIL. [Concomitant]
     Active Substance: MYCOPHENOLATE MOFETIL
  9. METHOTREXATE INJECTION, USP [Concomitant]
     Active Substance: METHOTREXATE
  10. SPIRONOLACTONE. [Concomitant]
     Active Substance: SPIRONOLACTONE
  11. AMLODIPINE [Concomitant]
     Active Substance: AMLODIPINE BESYLATE
  12. CLOLAR [Concomitant]
     Active Substance: CLOFARABINE
  13. CYCLOPHOSPHAMIDE. [Concomitant]
     Active Substance: CYCLOPHOSPHAMIDE
  14. CYTARABINE INJECTION [Concomitant]
     Active Substance: CYTARABINE
  15. FLUDARABINE [Concomitant]
     Active Substance: FLUDARABINE PHOSPHATE
  16. FUROSEMIDE INJ USP [Concomitant]
     Active Substance: FUROSEMIDE
  17. ATRIANCE [Concomitant]
     Active Substance: NELARABINE

REACTIONS (1)
  - Cardiotoxicity [Recovering/Resolving]
